FAERS Safety Report 20790268 (Version 5)
Quarter: 2022Q2

REPORT INFORMATION
  Report Type: Report from Study
  Country: ES (occurrence: None)
  Receive Date: 20220505
  Receipt Date: 20220614
  Transmission Date: 20220721
  Serious: Yes (Hospitalization, Disabling)
  Sender: FDA-Public Use
  Company Number: ES-ROCHE-3086142

PATIENT
  Age: 57 Year
  Sex: Male

DRUGS (17)
  1. ATEZOLIZUMAB [Suspect]
     Active Substance: ATEZOLIZUMAB
     Indication: Hepatocellular carcinoma
     Dosage: LAST DOSE BEFORE AE: 06/APR/2022 AT 11.10 HRS
     Route: 042
     Dates: start: 20220224
  2. BEVACIZUMAB [Suspect]
     Active Substance: BEVACIZUMAB
     Indication: Hepatocellular carcinoma
     Dosage: LAST DOSE BEFORE AE: 06/APR/2022 AT 12.06 HRS
     Route: 042
     Dates: start: 20220224
  3. PAZITAL [Concomitant]
     Active Substance: ACETAMINOPHEN\TRAMADOL HYDROCHLORIDE
     Indication: Back pain
     Route: 048
     Dates: start: 20220401, end: 20220406
  4. PAZITAL [Concomitant]
     Active Substance: ACETAMINOPHEN\TRAMADOL HYDROCHLORIDE
     Route: 048
     Dates: start: 20220406, end: 20220412
  5. ACETAMINOPHEN [Concomitant]
     Active Substance: ACETAMINOPHEN
     Indication: Prophylaxis
     Route: 048
     Dates: start: 20220112, end: 20220401
  6. OMEPRAZOLE [Concomitant]
     Active Substance: OMEPRAZOLE
     Indication: Prophylaxis
     Route: 048
     Dates: start: 20220112, end: 20220429
  7. OMEPRAZOLE [Concomitant]
     Active Substance: OMEPRAZOLE
     Route: 048
     Dates: start: 20220430
  8. DEXKETOPROFEN [Concomitant]
     Active Substance: DEXKETOPROFEN
     Indication: Prophylaxis
     Route: 048
     Dates: start: 20220308, end: 20220323
  9. DEXKETOPROFEN [Concomitant]
     Active Substance: DEXKETOPROFEN
     Indication: Back pain
     Route: 048
     Dates: start: 20220324, end: 20220401
  10. DEXKETOPROFEN [Concomitant]
     Active Substance: DEXKETOPROFEN
     Route: 048
     Dates: start: 20220401, end: 20220406
  11. METAMIZOL [Concomitant]
     Active Substance: METAMIZOLE SODIUM
     Indication: Back pain
     Route: 042
     Dates: start: 20220406, end: 20220406
  12. METAMIZOL [Concomitant]
     Active Substance: METAMIZOLE SODIUM
     Route: 042
     Dates: start: 20220412, end: 20220412
  13. METAMIZOL [Concomitant]
     Active Substance: METAMIZOLE SODIUM
     Route: 048
     Dates: start: 20220407, end: 20220411
  14. LISINOPRIL [Concomitant]
     Active Substance: LISINOPRIL
     Indication: Hypertension
     Route: 048
     Dates: start: 20220406, end: 20220406
  15. MORPHINE [Concomitant]
     Active Substance: MORPHINE
     Indication: Back pain
     Route: 048
     Dates: start: 20220426
  16. MORPHINE [Concomitant]
     Active Substance: MORPHINE
     Indication: Spinal laminectomy
     Route: 042
     Dates: start: 20220302, end: 20220503
  17. BEMIPARIN SODIUM [Concomitant]
     Active Substance: BEMIPARIN SODIUM
     Indication: Prophylaxis
     Route: 058
     Dates: start: 20220302

REACTIONS (3)
  - Spinal laminectomy [Recovered/Resolved]
  - Mobility decreased [Not Recovered/Not Resolved]
  - Wound dehiscence [Recovered/Resolved]

NARRATIVE: CASE EVENT DATE: 20220423
